FAERS Safety Report 10111033 (Version 1)
Quarter: 2014Q2

REPORT INFORMATION
  Report Type: Spontaneous
  Country: US (occurrence: None)
  Receive Date: 20140424
  Receipt Date: 20140424
  Transmission Date: 20141212
  Serious: No
  Sender: FDA-Public Use
  Company Number: None

PATIENT
  Age: 57 Year
  Sex: Female
  Weight: 47.63 kg

DRUGS (4)
  1. PROLIA [Suspect]
     Indication: OSTEOPOROSIS
     Dates: start: 20131216
  2. PROLIA [Suspect]
     Indication: BONE SCAN ABNORMAL
     Dates: start: 20131216
  3. MULTI VITAMINS [Concomitant]
  4. BIO-IDENTICSE HRT [Concomitant]

REACTIONS (2)
  - Myalgia [None]
  - Arthralgia [None]
